FAERS Safety Report 6275802-X (Version None)
Quarter: 2009Q3

REPORT INFORMATION
  Report Type: 
  Country: None (occurrence: None)
  Receive Date: 20090721
  Receipt Date: 20090715
  Transmission Date: 20100115
  Serious: Yes (Other)
  Sender: FDA-Public Use
  Company Number: US-JNJCH-2009012557

PATIENT
  Age: 61 Year
  Sex: Female
  Weight: 79.4 kg

DRUGS (1)
  1. VISINE-A [Suspect]
     Indication: HYPERSENSITIVITY
     Dosage: TEXT:ONE DROP IN EACH EYE TWICE DAILY
     Route: 047

REACTIONS (3)
  - APPLICATION SITE ERYTHEMA [None]
  - APPLICATION SITE SWELLING [None]
  - HYPERSENSITIVITY [None]
